FAERS Safety Report 19701218 (Version 1)
Quarter: 2021Q3

REPORT INFORMATION
  Report Type: Spontaneous
  Country: PL (occurrence: PL)
  Receive Date: 20210813
  Receipt Date: 20210813
  Transmission Date: 20211014
  Serious: Yes (Hospitalization)
  Sender: FDA-Public Use
  Company Number: PL-ENDO PHARMACEUTICALS INC-2021-010902

PATIENT
  Age: 86 Year
  Sex: Male

DRUGS (1)
  1. ACYCLOVIR. [Suspect]
     Active Substance: ACYCLOVIR
     Indication: OPHTHALMIC HERPES SIMPLEX
     Dosage: 400 MG, BID (STARTED FOUR DAYS BEFORE HOSPITAL ADMISSION)
     Route: 065

REACTIONS (3)
  - Neurotoxicity [Recovering/Resolving]
  - Extrapyramidal disorder [Recovering/Resolving]
  - Ataxia [Recovering/Resolving]
